FAERS Safety Report 6235998-2 (Version None)
Quarter: 2009Q2

REPORT INFORMATION
  Report Type: 
  Country: None (occurrence: None)
  Receive Date: 20090619
  Receipt Date: 20090612
  Transmission Date: 20091009
  Serious: Yes (Death, Hospitalization)
  Sender: FDA-Public Use
  Company Number: IT-BRISTOL-MYERS SQUIBB COMPANY-14498174

PATIENT
  Sex: Female

DRUGS (7)
  1. METFORMIN HCL [Suspect]
  2. DAONIL [Concomitant]
  3. LASIX [Concomitant]
  4. DILTIAZEM [Concomitant]
  5. LIMPIDEX [Concomitant]
  6. SEROQUEL [Concomitant]
  7. CARDIOASPIRINE [Concomitant]

REACTIONS (5)
  - BRADYCARDIA [None]
  - CHOLECYSTITIS ACUTE [None]
  - COMA [None]
  - HYPOTENSION [None]
  - METABOLIC ACIDOSIS [None]
